FAERS Safety Report 5542022-3 (Version None)
Quarter: 2007Q4

REPORT INFORMATION
  Report Type: 
  Country: None (occurrence: None)
  Receive Date: 20071210
  Receipt Date: 20071128
  Transmission Date: 20080405
  Serious: Yes (Hospitalization, Other)
  Sender: FDA-Public Use
  Company Number: US-MERCK-0711USA05887

PATIENT
  Age: 78 Year
  Sex: Female

DRUGS (21)
  1. DECADRON [Suspect]
     Indication: MULTIPLE MYELOMA
     Route: 048
     Dates: start: 20070219, end: 20070511
  2. DECADRON [Suspect]
     Route: 048
     Dates: start: 20070423, end: 20070507
  3. DECADRON [Suspect]
     Route: 048
     Dates: start: 20070320, end: 20070405
  4. DECADRON [Suspect]
     Route: 048
     Dates: start: 20070419, end: 20070505
  5. REVLIMID [Suspect]
     Indication: MULTIPLE MYELOMA
     Route: 048
     Dates: start: 20070419, end: 20070505
  6. REVLIMID [Suspect]
     Route: 048
     Dates: start: 20070320, end: 20070405
  7. REVLIMID [Suspect]
     Route: 048
     Dates: start: 20070219, end: 20070511
  8. REVLIMID [Suspect]
     Route: 048
     Dates: start: 20070423, end: 20070507
  9. IRON (UNSPECIFIED) [Concomitant]
     Indication: ANAEMIA
     Route: 065
  10. AREDIA [Concomitant]
     Indication: MULTIPLE MYELOMA
     Route: 065
  11. LIPITOR [Concomitant]
     Indication: BLOOD CHOLESTEROL
     Route: 065
  12. METHYLDOPA [Concomitant]
     Indication: HYPERTENSION
     Route: 065
  13. LASIX [Concomitant]
     Indication: HYPERTENSION
     Route: 065
  14. COUMADIN [Concomitant]
     Indication: DEEP VEIN THROMBOSIS
     Route: 065
  15. DARVOCET [Concomitant]
     Indication: PAIN
     Route: 065
  16. SYNTHROID [Concomitant]
     Indication: THYROID DISORDER
     Route: 065
  17. INSULIN [Concomitant]
     Indication: DIABETES MELLITUS
     Route: 065
  18. ARANESP [Concomitant]
     Indication: ANAEMIA
     Route: 065
  19. NEUPOGEN [Concomitant]
     Indication: FULL BLOOD COUNT DECREASED
     Route: 065
  20. FORTAZ [Concomitant]
     Route: 042
  21. LEVAQUIN [Concomitant]
     Route: 065

REACTIONS (8)
  - ASTHENIA [None]
  - DIARRHOEA [None]
  - FATIGUE [None]
  - HAEMOGLOBIN DECREASED [None]
  - NEUTROPENIA [None]
  - PYREXIA [None]
  - THROMBOCYTOPENIA [None]
  - WHITE BLOOD CELL COUNT DECREASED [None]
